FAERS Safety Report 7209203-4 (Version None)
Quarter: 2011Q1

REPORT INFORMATION
  Report Type: 
  Country: None (occurrence: None)
  Receive Date: 20110104
  Receipt Date: 20101216
  Transmission Date: 20110831
  Serious: Yes (Hospitalization)
  Sender: FDA-Public Use
  Company Number: A0801473A

PATIENT
  Sex: Female
  Weight: 53.6 kg

DRUGS (10)
  1. ASPIRIN [Concomitant]
  2. POTASSIUM [Concomitant]
  3. PRILOSEC [Concomitant]
  4. LEVOTHYROXINE [Concomitant]
  5. AVANDIA [Suspect]
     Indication: DIABETES MELLITUS
     Route: 048
  6. LISINOPRIL [Concomitant]
  7. AVANDAMET [Suspect]
     Route: 048
     Dates: start: 20041214, end: 20050329
  8. COREG [Concomitant]
  9. LASIX [Concomitant]
  10. METFORMIN [Concomitant]

REACTIONS (3)
  - MYOCARDIAL INFARCTION [None]
  - CARDIAC FAILURE CONGESTIVE [None]
  - CORONARY ARTERY DISEASE [None]
